FAERS Safety Report 9264884 (Version 1)
Quarter: 2013Q2

REPORT INFORMATION
  Report Type: Report from Study
  Country: MX (occurrence: MX)
  Receive Date: 20130501
  Receipt Date: 20130501
  Transmission Date: 20140414
  Serious: Yes (Disabling, Other)
  Sender: FDA-Public Use
  Company Number: PHHY2013MX042779

PATIENT
  Age: 48 Year
  Sex: Male

DRUGS (2)
  1. CO-DIOVAN [Suspect]
     Indication: HYPERTENSION
     Dosage: 1 DF (160/12.5MG), DAILY
     Route: 048
     Dates: start: 200601
  2. TENORMIN [Concomitant]
     Dosage: 1 UKN, DAILY
     Dates: start: 200301

REACTIONS (2)
  - Joint injury [Not Recovered/Not Resolved]
  - Accident [Not Recovered/Not Resolved]
